FAERS Safety Report 7419794-6 (Version None)
Quarter: 2011Q2

REPORT INFORMATION
  Report Type: 
  Country: None (occurrence: None)
  Receive Date: 20110418
  Receipt Date: 20110404
  Transmission Date: 20111010
  Serious: Yes (Hospitalization)
  Sender: FDA-Public Use
  Company Number: US-JNJFOC-20110303892

PATIENT
  Sex: Female
  Weight: 58.97 kg

DRUGS (4)
  1. ATENOLOL [Concomitant]
     Indication: MITRAL VALVE PROLAPSE
     Route: 048
  2. ASACOL [Concomitant]
     Indication: CROHN'S DISEASE
     Route: 048
  3. REMICADE [Suspect]
     Indication: CROHN'S DISEASE
     Route: 042
  4. AGGRENOX [Concomitant]
     Indication: ANTIPLATELET THERAPY
     Route: 048

REACTIONS (2)
  - TRANSIENT ISCHAEMIC ATTACK [None]
  - CEREBROVASCULAR ACCIDENT [None]
